FAERS Safety Report 14187825 (Version 3)
Quarter: 2018Q1

REPORT INFORMATION
  Report Type: Spontaneous
  Country: JP (occurrence: JP)
  Receive Date: 20171114
  Receipt Date: 20180209
  Transmission Date: 20180508
  Serious: Yes (Life-Threatening)
  Sender: FDA-Public Use
  Company Number: JP-HTU-2017JP013429

PATIENT
  Age: 63 Year
  Sex: Female
  Weight: 56 kg

DRUGS (10)
  1. REBAMIPIDE [Concomitant]
     Active Substance: REBAMIPIDE
     Route: 048
  2. EMEND [Concomitant]
     Active Substance: APREPITANT
     Dosage: 125 MG, QD
     Route: 048
  3. CARBOPLATIN. [Concomitant]
     Active Substance: CARBOPLATIN
     Indication: METASTATIC UTERINE CANCER
     Dosage: 70 MG, QD
     Route: 041
     Dates: start: 20170704, end: 20170912
  4. LOXOPROFEN [Concomitant]
     Active Substance: LOXOPROFEN
     Route: 048
  5. RINDERON V [Suspect]
     Active Substance: BETAMETHASONE VALERATE
     Indication: PROPHYLAXIS OF NAUSEA AND VOMITING
     Dosage: 4 MG, Q3WK
     Route: 041
     Dates: start: 20170704, end: 20171003
  6. DOCETAXEL. [Concomitant]
     Active Substance: DOCETAXEL
     Indication: METASTATIC UTERINE CANCER
     Dosage: 100 MG, QD
     Route: 041
     Dates: start: 20170704, end: 20170912
  7. EDOXABAN TOSILATE HYDRATE [Concomitant]
     Indication: PULMONARY EMBOLISM
  8. EDOXABAN TOSILATE HYDRATE [Concomitant]
     Indication: DEEP VEIN THROMBOSIS
     Dosage: 30 MG, QD
     Route: 048
  9. ALOXI [Suspect]
     Active Substance: PALONOSETRON HYDROCHLORIDE
     Indication: PROPHYLAXIS OF NAUSEA AND VOMITING
     Dosage: 0.75 MG, Q3WK
     Route: 041
     Dates: start: 20170704, end: 20171003
  10. MAGNESIUM OXIDE. [Concomitant]
     Active Substance: MAGNESIUM OXIDE
     Indication: CONSTIPATION
     Dosage: 750 MG, QD
     Route: 048

REACTIONS (3)
  - Disseminated intravascular coagulation [Recovering/Resolving]
  - Haemolytic anaemia [Recovering/Resolving]
  - Altered state of consciousness [Recovering/Resolving]

NARRATIVE: CASE EVENT DATE: 20171003
